FAERS Safety Report 7066500-3 (Version None)
Quarter: 2010Q4

REPORT INFORMATION
  Report Type: 
  Country: None (occurrence: None)
  Receive Date: 20101027
  Receipt Date: 20100713
  Transmission Date: 20110411
  Serious: No
  Sender: FDA-Public Use
  Company Number: US-WYE-H15360610

PATIENT
  Sex: Female
  Weight: 68.1 kg

DRUGS (7)
  1. PREMPRO [Suspect]
     Indication: MENOPAUSE
     Route: 048
     Dates: start: 20090101
  2. PLAQUENIL [Concomitant]
  3. SIMVASTATIN [Concomitant]
  4. CELL CEPT [Concomitant]
  5. SYNTHROID [Concomitant]
  6. COZAAR [Concomitant]
  7. AMLODIPINE [Concomitant]

REACTIONS (3)
  - INAPPROPRIATE SCHEDULE OF DRUG ADMINISTRATION [None]
  - METRORRHAGIA [None]
  - PRODUCT PACKAGING ISSUE [None]
